FAERS Safety Report 9784218 (Version 2)
Quarter: 2014Q1

REPORT INFORMATION
  Report Type: Spontaneous
  Country: JP (occurrence: JP)
  Receive Date: 20131226
  Receipt Date: 20140102
  Transmission Date: 20141002
  Serious: Yes (Hospitalization)
  Sender: FDA-Public Use
  Company Number: JP-PFIZER INC-2013366617

PATIENT
  Age: 62 Year
  Sex: Female

DRUGS (7)
  1. LIPITOR [Suspect]
     Indication: HYPERLIPIDAEMIA
     Dosage: 5 MG, 1X/DAY
     Route: 048
     Dates: start: 2007, end: 201306
  2. ATORVASTATIN CALCIUM [Suspect]
     Indication: HYPERLIPIDAEMIA
     Dosage: 5 MG, DAILY
     Route: 048
     Dates: start: 201307
  3. MICARDIS [Suspect]
     Indication: HYPERTENSION
     Dosage: 40 MG, DAILY
     Route: 048
     Dates: start: 2008
  4. GASTER [Suspect]
     Indication: GASTRITIS
     Dosage: 10 MG, 1X/DAY
     Route: 048
     Dates: start: 2007
  5. WARFARIN [Concomitant]
     Dosage: UNK
     Route: 048
     Dates: start: 2007
  6. BIOFERMIN [Concomitant]
     Dosage: UNK
     Route: 048
     Dates: start: 2007
  7. NEUQUINON [Concomitant]
     Dosage: UNK
     Route: 048
     Dates: start: 2007

REACTIONS (2)
  - Cerebrovascular accident [Recovered/Resolved]
  - Alopecia [Unknown]
